FAERS Safety Report 5521145-9 (Version None)
Quarter: 2007Q4

REPORT INFORMATION
  Report Type: 
  Country: None (occurrence: None)
  Receive Date: 20071119
  Receipt Date: 20071115
  Transmission Date: 20080405
  Serious: Yes (Death)
  Sender: FDA-Public Use
  Company Number: JP-AVENTIS-200713089JP

PATIENT
  Age: 66 Year
  Sex: Male

DRUGS (4)
  1. TAXOTERE [Suspect]
     Indication: PROSTATE CANCER
     Dates: start: 20050101
  2. ESTRACYT                           /00327002/ [Concomitant]
     Indication: PROSTATE CANCER
  3. ETOPOSIDE [Concomitant]
     Indication: PROSTATE CANCER
  4. CARBOPLATIN [Concomitant]
     Indication: PROSTATE CANCER

REACTIONS (1)
  - ACUTE MYELOID LEUKAEMIA [None]
